FAERS Safety Report 6145866-2 (Version None)
Quarter: 2009Q2

REPORT INFORMATION
  Report Type: 
  Country: None (occurrence: None)
  Receive Date: 20090406
  Receipt Date: 20090406
  Transmission Date: 20091009
  Serious: Yes (Other)
  Sender: FDA-Public Use
  Company Number: None

PATIENT
  Sex: Female
  Weight: 65.7716 kg

DRUGS (1)
  1. LYRICA [Suspect]
     Dates: start: 20080601, end: 20090301

REACTIONS (4)
  - CORRECTIVE LENS USER [None]
  - EYE PAIN [None]
  - OPTIC NEURITIS [None]
  - VISION BLURRED [None]
